FAERS Safety Report 5664450-8 (Version None)
Quarter: 2008Q1

REPORT INFORMATION
  Report Type: 
  Country: None (occurrence: None)
  Receive Date: 20080312
  Receipt Date: 20080226
  Transmission Date: 20080703
  Serious: Yes (Other)
  Sender: FDA-Public Use
  Company Number: GB-1165380

PATIENT

DRUGS (4)
  1. MAXITROL (MAXITROL) SUSPENSION LOT # 07B19D EYE DROPS, SUSPENSION, LOT [Suspect]
     Route: 047
  2. MAXITROL (MAXITROL) SUSPENSION LOT # 07B19D EYE DROPS, SUSPENSION, LOT [Suspect]
  3. MAXITROL (MAXITROL) OINTMENT LOT# 05F02C EYE OINTMENT, LOT# 06120B EYE [Suspect]
     Route: 047
  4. MAXITROL (MAXITROL) OINTMENT LOT# 05F02C EYE OINTMENT, LOT# 06I20B EYE [Suspect]

REACTIONS (1)
  - IMPAIRED HEALING [None]
